FAERS Safety Report 8388142-X (Version None)
Quarter: 2012Q2

REPORT INFORMATION
  Report Type: 
  Country: None (occurrence: None)
  Receive Date: 20120525
  Receipt Date: 20120518
  Transmission Date: 20120825
  Serious: Yes (Hospitalization)
  Sender: FDA-Public Use
  Company Number: US-INCYTE CORPORATION-2012IN000842

PATIENT
  Sex: Female

DRUGS (5)
  1. JAKAFI [Suspect]
     Dosage: 20 MG, QD
     Route: 048
  2. JAKAFI [Suspect]
     Dosage: 20 MG, BID
     Dates: start: 20120322
  3. LOVENOX [Suspect]
  4. JAKAFI [Suspect]
     Indication: MYELOFIBROSIS
     Dosage: 20 MG, BID
     Route: 048
     Dates: start: 20111229, end: 20120321
  5. COUMADIN [Suspect]
     Dosage: 8 MG, UNK
     Route: 048

REACTIONS (8)
  - WEIGHT INCREASED [None]
  - LIMB INJURY [None]
  - DYSPNOEA [None]
  - ABDOMINAL PAIN [None]
  - FALL [None]
  - TRAUMATIC HAEMATOMA [None]
  - CHEST PAIN [None]
  - INTERNATIONAL NORMALISED RATIO ABNORMAL [None]
